FAERS Safety Report 4976381-7 (Version None)
Quarter: 2006Q2

REPORT INFORMATION
  Report Type: 
  Country: None (occurrence: None)
  Receive Date: 20060419
  Receipt Date: 20050406
  Transmission Date: 20061013
  Serious: No
  Sender: FDA-Public Use
  Company Number: US-BRISTOL-MYERS SQUIBB COMPANY-12925087

PATIENT
  Age: 55 Year
  Sex: Female

DRUGS (1)
  1. THALLIUM (201 TL) [Suspect]
     Dosage: DOSING: 4MCI
     Dates: start: 20050331, end: 20050331

REACTIONS (1)
  - RASH [None]
